FAERS Safety Report 4860671-2 (Version None)
Quarter: 2005Q4

REPORT INFORMATION
  Report Type: 
  Country: None (occurrence: None)
  Receive Date: 20051216
  Receipt Date: 20051202
  Transmission Date: 20060501
  Serious: Yes (Life-Threatening, Hospitalization, Other)
  Sender: FDA-Public Use
  Company Number: USA0510111631

PATIENT
  Age: 18 Year
  Sex: Female

DRUGS (1)
  1. PROZAC [Suspect]
     Indication: OBSESSIVE-COMPULSIVE DISORDER
     Dosage: SEE IMAGE
     Dates: start: 20050901, end: 20051001

REACTIONS (17)
  - ABNORMAL BEHAVIOUR [None]
  - ACCIDENTAL OVERDOSE [None]
  - ALCOHOL PROBLEM [None]
  - APATHY [None]
  - DISTURBANCE IN ATTENTION [None]
  - DRUG DISPENSING ERROR [None]
  - INTENTIONAL DRUG MISUSE [None]
  - INTENTIONAL OVERDOSE [None]
  - MEDICATION ERROR [None]
  - MENTAL IMPAIRMENT [None]
  - MENTAL STATUS CHANGES [None]
  - MOOD SWINGS [None]
  - OVERDOSE [None]
  - RESPIRATORY DISTRESS [None]
  - SOMNOLENCE [None]
  - SUICIDAL IDEATION [None]
  - VERBAL ABUSE [None]
